FAERS Safety Report 11718632 (Version 1)
Quarter: 2015Q4

REPORT INFORMATION
  Report Type: Spontaneous
  Country: US (occurrence: US)
  Receive Date: 20151109
  Receipt Date: 20151109
  Transmission Date: 20160304
  Serious: Yes (Other)
  Sender: FDA-Public Use
  Company Number: US-BAYER-2015-458199

PATIENT
  Sex: Female
  Weight: 79.37 kg

DRUGS (9)
  1. CLOBETASOL PROPIONATE. [Concomitant]
     Active Substance: CLOBETASOL PROPIONATE
     Dosage: .05 %, Q2WK
  2. BAYER LOW DOSE [Suspect]
     Active Substance: ASPIRIN
     Indication: CARDIOVASCULAR EVENT PROPHYLAXIS
  3. COMFORT GEL [AL+ HYDROX-MGCO3 GEL,MG+ HYDROX,SIMETIC] [Concomitant]
     Indication: DYSPEPSIA
  4. PREMARIN VAGINAL [Suspect]
     Active Substance: ESTROGENS, CONJUGATED
     Dosage: 0.625 MG, Q2WK
     Route: 067
     Dates: start: 20151026
  5. K-Y JELLY [Suspect]
     Active Substance: CHLORHEXIDINE GLUCONATE
  6. ATORVASTATIN [Concomitant]
     Active Substance: ATORVASTATIN
     Indication: BLOOD CHOLESTEROL ABNORMAL
     Dosage: 20 MG, QD
  7. BAYER GENUINE ASPIRIN [Suspect]
     Active Substance: ASPIRIN
     Indication: CARDIOVASCULAR EVENT PROPHYLAXIS
  8. ASTROGLIDE GEL BIOFILM [Suspect]
     Active Substance: CHLORHEXIDINE GLUCONATE\GLUCONOLACTONE\GLYCERIN\HYDROXYETHYL CELLULOSE\METHYLPARABEN\SODIUM HYDROXIDE\WATER
  9. AMLODIPINE [Concomitant]
     Active Substance: AMLODIPINE BESYLATE
     Indication: HYPERTENSION
     Dosage: 10 MG, QD
     Route: 048

REACTIONS (8)
  - Skin discolouration [None]
  - Vulvovaginal burning sensation [None]
  - Hypersensitivity [None]
  - Product use issue [None]
  - Soft tissue injury [None]
  - Vaginal disorder [None]
  - Off label use [None]
  - Skin lesion [None]
